FAERS Safety Report 4724685-5 (Version None)
Quarter: 2005Q3

REPORT INFORMATION
  Report Type: 
  Country: None (occurrence: None)
  Receive Date: 20050720
  Receipt Date: 20050720
  Transmission Date: 20060218
  Serious: Yes (Hospitalization)
  Sender: FDA-Public Use
  Company Number: None

PATIENT
  Age: 66 Year
  Sex: Male

DRUGS (16)
  1. MS CONTIN [Suspect]
     Indication: PAIN
     Dosage: 15MG PO   TID
     Route: 048
     Dates: start: 20050426, end: 20050428
  2. PERCOCET [Suspect]
     Indication: PAIN
     Dosage: 1-2 TABS PO   Q6H PRN  PAIN
     Route: 048
     Dates: start: 20050308, end: 20050428
  3. CLINDAMYCIN [Concomitant]
  4. DOCUSATE NA [Concomitant]
  5. FERROUS SULFATE TAB [Concomitant]
  6. FLUDROCORTISONE ACETATE [Concomitant]
  7. FUROSEMIDE [Concomitant]
  8. MEGESTROL ACETATE [Concomitant]
  9. METOPROLOL [Concomitant]
  10. MORPHINE SO4 [Concomitant]
  11. NYSTATIN [Concomitant]
  12. OMEPRAZOLE [Concomitant]
  13. OXYCODONE + ACETAMIN [Concomitant]
  14. SALSALATE [Concomitant]
  15. SERTRALINE HCL [Concomitant]
  16. SIMVASTATIN [Concomitant]

REACTIONS (5)
  - ABDOMINAL DISTENSION [None]
  - CONSTIPATION [None]
  - ILEUS [None]
  - NAUSEA [None]
  - VOMITING [None]
